FAERS Safety Report 9210830 (Version 1)
Quarter: 2013Q2

REPORT INFORMATION
  Report Type: Spontaneous
  Country: DE (occurrence: DE)
  Receive Date: 20130404
  Receipt Date: 20130404
  Transmission Date: 20140414
  Serious: Yes (Other)
  Sender: FDA-Public Use
  Company Number: PHHY2013DE031416

PATIENT
  Age: 49 Year
  Sex: Male

DRUGS (3)
  1. 5-FLUOROURACIL [Suspect]
     Indication: RECTAL CANCER
     Dosage: 1000 MG/M2, DAILY
  2. CALCIUM CHANNEL BLOCKERS [Concomitant]
     Indication: PROPHYLAXIS
  3. NITRENDIPINE [Concomitant]
     Dosage: 10 MG, BID

REACTIONS (3)
  - Angina pectoris [Recovered/Resolved]
  - Bundle branch block left [Recovered/Resolved]
  - Cardiotoxicity [Recovered/Resolved]
